FAERS Safety Report 23801910 (Version 1)
Quarter: 2024Q2

REPORT INFORMATION
  Report Type: Spontaneous
  Country: US (occurrence: US)
  Receive Date: 20240501
  Receipt Date: 20240501
  Transmission Date: 20240716
  Serious: Yes (Hospitalization)
  Sender: FDA-Public Use
  Company Number: US-BoehringerIngelheim-2024-BI-024296

PATIENT

DRUGS (1)
  1. JARDIANCE [Suspect]
     Active Substance: EMPAGLIFLOZIN
     Indication: Product used for unknown indication
     Dates: start: 20240328

REACTIONS (6)
  - Ketoacidosis [Unknown]
  - Fatigue [Unknown]
  - Dyspnoea [Unknown]
  - Dehydration [Unknown]
  - Condition aggravated [Unknown]
  - Abdominal pain upper [Unknown]
